FAERS Safety Report 6254737-2 (Version None)
Quarter: 2009Q2

REPORT INFORMATION
  Report Type: 
  Country: None (occurrence: None)
  Receive Date: 20090630
  Receipt Date: 20090619
  Transmission Date: 20091009
  Serious: Yes (Hospitalization)
  Sender: FDA-Public Use
  Company Number: 2009-0031

PATIENT
  Age: 65 Year
  Sex: Female

DRUGS (6)
  1. SOMATULINA AUTOGEL 120MG (LANREOTIDE) (LANREOTIDE ACETATE) [Suspect]
     Indication: NEUROENDOCRINE TUMOUR
     Dosage: 120MG, 1 IN 4 WK, SUBCUTANEOUS
     Route: 058
     Dates: start: 20080319, end: 20090110
  2. CALCIUM (CALCIUM) [Concomitant]
  3. INSULIN (INSULIN) [Concomitant]
  4. KREON (PANCREATIN) [Concomitant]
  5. LORAZEPAM [Concomitant]
  6. OMEPRAZOLE [Concomitant]

REACTIONS (5)
  - GLOMERULONEPHRITIS [None]
  - METASTASES TO LIVER [None]
  - NEPHROTIC SYNDROME [None]
  - PLEURAL EFFUSION [None]
  - RENAL FAILURE ACUTE [None]
